FAERS Safety Report 24831197 (Version 1)
Quarter: 2025Q1

REPORT INFORMATION
  Report Type: Spontaneous
  Country: CN (occurrence: CN)
  Receive Date: 20250110
  Receipt Date: 20250110
  Transmission Date: 20250408
  Serious: Yes (Other)
  Sender: BAYER HEALTHCARE PHARMACEUTICALS INC.
  Company Number: CN-BAYER-2025A003736

PATIENT

DRUGS (1)
  1. STIVARGA [Suspect]
     Active Substance: REGORAFENIB MONOHYDRATE

REACTIONS (2)
  - Posterior reversible encephalopathy syndrome [Not Recovered/Not Resolved]
  - Brain oedema [Not Recovered/Not Resolved]
